FAERS Safety Report 9935224 (Version 1)
Quarter: 2014Q1

REPORT INFORMATION
  Report Type: Spontaneous
  Country: US (occurrence: US)
  Receive Date: 20140228
  Receipt Date: 20140228
  Transmission Date: 20141002
  Serious: Yes (Hospitalization)
  Sender: FDA-Public Use
  Company Number: US-JNJFOC-20140214856

PATIENT
  Age: 66 Year
  Sex: Female
  Weight: 65.77 kg

DRUGS (10)
  1. XARELTO [Suspect]
     Indication: THROMBOSIS
     Route: 048
     Dates: start: 201401
  2. CARDIZEM [Interacting]
     Indication: PRODUCT USED FOR UNKNOWN INDICATION
     Route: 065
  3. NORVASC [Concomitant]
     Indication: HYPERTENSION
     Route: 048
     Dates: start: 2014
  4. VASOTEC [Concomitant]
     Indication: HYPERTENSION
     Dosage: 20 MG AM
     Route: 048
  5. VASOTEC [Concomitant]
     Indication: HYPERTENSION
     Dosage: 10 MG PM
     Route: 048
  6. LASIX [Concomitant]
     Indication: OEDEMA PERIPHERAL
     Route: 048
  7. WELCHOL [Concomitant]
     Indication: HYPERLIPIDAEMIA
     Route: 048
     Dates: start: 2012
  8. PAXIL [Concomitant]
     Indication: DEPRESSION
     Route: 048
  9. BUSPAR [Concomitant]
     Indication: ANXIETY
     Route: 048
  10. TRAZODONE [Concomitant]
     Indication: INSOMNIA
     Route: 065

REACTIONS (6)
  - Lipase increased [Recovered/Resolved]
  - Drug interaction [Unknown]
  - Investigation [Unknown]
  - Vertigo [Unknown]
  - Nasopharyngitis [Not Recovered/Not Resolved]
  - Arthritis [Unknown]
